FAERS Safety Report 24948257 (Version 2)
Quarter: 2025Q1

REPORT INFORMATION
  Report Type: Spontaneous
  Country: CL (occurrence: CL)
  Receive Date: 20250210
  Receipt Date: 20250214
  Transmission Date: 20250409
  Serious: No
  Sender: ROCHE
  Company Number: CL-ROCHE-10000200690

PATIENT
  Age: 68 Year
  Sex: Female
  Weight: 72 kg

DRUGS (3)
  1. AVASTIN [Suspect]
     Active Substance: BEVACIZUMAB
     Indication: Age-related macular degeneration
     Dosage: 1.25MG/0.05ML?FREQUENCY WAS NOT REPORTED
     Route: 050
     Dates: start: 2020, end: 2020
  2. CALCIUM CARBONATE\CHOLECALCIFEROL [Concomitant]
     Active Substance: CALCIUM CARBONATE\CHOLECALCIFEROL
     Indication: Osteoporosis
     Route: 048
  3. ATORVASTATIN [Concomitant]
     Active Substance: ATORVASTATIN
     Indication: Blood cholesterol
     Route: 048

REACTIONS (2)
  - Off label use [Unknown]
  - No adverse event [Unknown]

NARRATIVE: CASE EVENT DATE: 20200101
